FAERS Safety Report 25024122 (Version 2)
Quarter: 2025Q1

REPORT INFORMATION
  Report Type: Spontaneous
  Country: CA (occurrence: CA)
  Receive Date: 20250228
  Receipt Date: 20250312
  Transmission Date: 20250408
  Serious: No
  Sender: MYLAN
  Company Number: CA-MYLANLABS-2025M1015411

PATIENT

DRUGS (1)
  1. EPIPEN [Suspect]
     Active Substance: EPINEPHRINE
     Indication: Product used for unknown indication

REACTIONS (5)
  - Injection site hypoaesthesia [Unknown]
  - Injection site pallor [Unknown]
  - Wrong technique in product usage process [Unknown]
  - Injury associated with device [Unknown]
  - Device failure [Unknown]
